FAERS Safety Report 12679197 (Version 1)
Quarter: 2016Q3

REPORT INFORMATION
  Report Type: Spontaneous
  Country: FR (occurrence: FR)
  Receive Date: 20160824
  Receipt Date: 20160824
  Transmission Date: 20161109
  Serious: Yes (Hospitalization, Other)
  Sender: FDA-Public Use
  Company Number: FR-PFIZER INC-2016384433

PATIENT
  Age: 55 Year
  Sex: Female

DRUGS (8)
  1. GEMCITABINE HYDROCHLORIDE. [Suspect]
     Active Substance: GEMCITABINE HYDROCHLORIDE
     Indication: OVARIAN CANCER
     Dosage: 900 MG/M2, CYCLIC
     Route: 042
     Dates: start: 201604, end: 20160708
  2. TRANSIPEG /00754501/ [Concomitant]
     Active Substance: POLYETHYLENE GLYCOL 3350
  3. STILNOX [Concomitant]
     Active Substance: ZOLPIDEM TARTRATE
  4. ATARAX [Concomitant]
     Active Substance: HYDROXYZINE\HYDROXYZINE HYDROCHLORIDE
  5. SMECTA /07327601/ [Concomitant]
  6. SPASFON /00765801/ [Concomitant]
     Active Substance: PHLOROGLUCINOL\1,3,5-TRIMETHOXYBENZENE
  7. DOLIPRANE [Concomitant]
     Active Substance: ACETAMINOPHEN
  8. IMODIUM [Concomitant]
     Active Substance: LOPERAMIDE HYDROCHLORIDE

REACTIONS (4)
  - Pericardial effusion [Recovering/Resolving]
  - Pleural effusion [Recovering/Resolving]
  - Oedema peripheral [Recovering/Resolving]
  - Haemorrhage [Unknown]

NARRATIVE: CASE EVENT DATE: 201607
